FAERS Safety Report 9468382 (Version 3)
Quarter: 2018Q2

REPORT INFORMATION
  Report Type: Report from Study
  Country: JP (occurrence: JP)
  Receive Date: 20130821
  Receipt Date: 20180507
  Transmission Date: 20180711
  Serious: Yes (Other)
  Sender: FDA-Public Use
  Company Number: JP-GILEAD-2013-0081665

PATIENT
  Age: 59 Year
  Sex: Female

DRUGS (23)
  1. PREZISTA [Suspect]
     Active Substance: DARUNAVIR ETHANOLATE
     Indication: HIV INFECTION
     Dosage: 800 MG, QD
     Route: 048
     Dates: start: 20110614, end: 20110815
  2. VFEND [Suspect]
     Active Substance: VORICONAZOLE
     Indication: ASPERGILLUS TEST POSITIVE
     Dosage: 200 MG, BID
     Route: 048
     Dates: start: 20110816, end: 20120911
  3. LANSOPRAZOLE. [Concomitant]
     Active Substance: LANSOPRAZOLE
     Indication: PRODUCT USED FOR UNKNOWN INDICATION
     Dosage: UNK
     Dates: start: 20110614
  4. URSO [Concomitant]
     Active Substance: URSODIOL
     Dosage: UNK
     Dates: start: 20110905, end: 20111103
  5. TRANSAMIN [Concomitant]
     Active Substance: TRANEXAMIC ACID
     Indication: PRODUCT USED FOR UNKNOWN INDICATION
     Dosage: UNK
     Dates: start: 20110627, end: 20110814
  6. TRAMCET [Concomitant]
     Active Substance: ACETAMINOPHEN\TRAMADOL
     Indication: PRODUCT USED FOR UNKNOWN INDICATION
     Dosage: UNK
     Dates: start: 20111024, end: 20111211
  7. FOSAMAC [Concomitant]
     Active Substance: ALENDRONATE SODIUM
     Indication: OSTEOPOROSIS
     Dosage: UNK
     Dates: start: 20111024
  8. LYRICA [Concomitant]
     Active Substance: PREGABALIN
     Indication: PRODUCT USED FOR UNKNOWN INDICATION
     Dosage: UNK
     Dates: start: 20121005
  9. PREDNISOLONE. [Suspect]
     Active Substance: PREDNISOLONE
     Dosage: 5 UNK, QD
     Route: 048
     Dates: start: 20110818, end: 20110824
  10. DOLUTEGRAVIR [Concomitant]
     Active Substance: DOLUTEGRAVIR
  11. EMTRICITABINE/TENOFOVIR DISOPROXIL FUMARATE [Suspect]
     Active Substance: EMTRICITABINE\TENOFOVIR DISOPROXIL FUMARATE
     Indication: HIV INFECTION
     Dosage: 1 DF, QD
     Route: 048
     Dates: start: 20110614
  12. NORVIR [Suspect]
     Active Substance: RITONAVIR
     Indication: HIV INFECTION
     Dosage: 100 MG, QD
     Route: 048
     Dates: start: 20110614, end: 20110815
  13. ITRIZOLE [Concomitant]
     Active Substance: ITRACONAZOLE
     Indication: PRODUCT USED FOR UNKNOWN INDICATION
     Dosage: UNK
     Dates: start: 20110711, end: 20110815
  14. TRAMCET [Concomitant]
     Active Substance: ACETAMINOPHEN\TRAMADOL
     Dosage: UNK
     Dates: start: 20120720
  15. ITRIZOLE [Concomitant]
     Active Substance: ITRACONAZOLE
     Dosage: UNK
     Dates: start: 20110912, end: 20111103
  16. VALIXA [Concomitant]
     Active Substance: VALGANCICLOVIR
     Indication: PRODUCT USED FOR UNKNOWN INDICATION
     Dosage: UNK
     Dates: start: 20110818, end: 20110822
  17. TRAMCET [Concomitant]
     Active Substance: ACETAMINOPHEN\TRAMADOL
     Dosage: UNK
     Dates: start: 20111212, end: 20120719
  18. PREDNISOLONE. [Suspect]
     Active Substance: PREDNISOLONE
     Indication: DRUG ERUPTION
     Dosage: 20 MG, QD
     Route: 048
     Dates: start: 20110804, end: 20110824
  19. BAKTAR [Concomitant]
     Active Substance: SULFAMETHOXAZOLE\TRIMETHOPRIM
     Indication: PRODUCT USED FOR UNKNOWN INDICATION
     Dosage: UNK
     Dates: start: 20110808, end: 20111012
  20. FLORID                             /00310801/ [Concomitant]
     Active Substance: MICONAZOLE
     Indication: PRODUCT USED FOR UNKNOWN INDICATION
     Dosage: UNK
     Dates: start: 20110818, end: 20110828
  21. RALTEGRAVIR. [Suspect]
     Active Substance: RALTEGRAVIR
     Indication: HIV INFECTION
     Dosage: UNK
     Route: 065
     Dates: start: 20110816
  22. ITRIZOLE [Concomitant]
     Active Substance: ITRACONAZOLE
     Dosage: UNK
     Dates: start: 20120421, end: 20121115
  23. URSO [Concomitant]
     Active Substance: URSODIOL
     Indication: PRODUCT USED FOR UNKNOWN INDICATION
     Dosage: UNK
     Dates: start: 20110902, end: 20110904

REACTIONS (4)
  - Back pain [Not Recovered/Not Resolved]
  - Pain [Not Recovered/Not Resolved]
  - Feeling cold [Not Recovered/Not Resolved]
  - Osteoporotic fracture [Not Recovered/Not Resolved]

NARRATIVE: CASE EVENT DATE: 20110819
